FAERS Safety Report 9266139 (Version 1)
Quarter: 2013Q2

REPORT INFORMATION
  Report Type: Spontaneous
  Country: US (occurrence: US)
  Receive Date: 20130502
  Receipt Date: 20130502
  Transmission Date: 20140414
  Serious: Yes (Other)
  Sender: FDA-Public Use
  Company Number: US-AMGEN-USASP2013030228

PATIENT
  Sex: Male

DRUGS (1)
  1. ENBREL [Suspect]
     Indication: CEREBROVASCULAR DISORDER
     Dosage: 25 MG, 1 TIME INJECTION AT C7  PERISPINAL

REACTIONS (2)
  - VIIth nerve paralysis [Not Recovered/Not Resolved]
  - Mobility decreased [Not Recovered/Not Resolved]
